FAERS Safety Report 6643463-3 (Version None)
Quarter: 2010Q1

REPORT INFORMATION
  Report Type: 
  Country: None (occurrence: None)
  Receive Date: 20100319
  Receipt Date: 20100309
  Transmission Date: 20100710
  Serious: Yes (Other)
  Sender: FDA-Public Use
  Company Number: FR-GILEAD-2010-0027070

PATIENT
  Sex: Female

DRUGS (7)
  1. VIREAD [Suspect]
     Indication: HEPATITIS B
     Route: 048
     Dates: start: 20080901
  2. IMUREL [Suspect]
     Indication: RENAL TRANSPLANT
     Dates: start: 20040604
  3. PROGRAF [Concomitant]
     Indication: RENAL TRANSPLANT
     Dates: start: 20040604
  4. ASPEGIC 1000 [Concomitant]
     Indication: THROMBOSIS PROPHYLAXIS
  5. TARDYFERON [Concomitant]
     Indication: ANAEMIA
  6. ZEFFIX [Concomitant]
     Dates: end: 20060201
  7. ZEFFIX [Concomitant]
     Dates: start: 20070801, end: 20080901

REACTIONS (1)
  - ABORTION SPONTANEOUS [None]
